FAERS Safety Report 5379128-8 (Version None)
Quarter: 2007Q3

REPORT INFORMATION
  Report Type: 
  Country: None (occurrence: None)
  Receive Date: 20070705
  Receipt Date: 20070622
  Transmission Date: 20080115
  Serious: Yes (Hospitalization)
  Sender: FDA-Public Use
  Company Number: DE-ELI_LILLY_AND_COMPANY-DE200706005358

PATIENT
  Age: 70 Year
  Sex: Male

DRUGS (14)
  1. CYMBALTA [Suspect]
     Indication: DEPRESSION
     Dosage: 30 MG, DAILY (1/D)
     Route: 048
     Dates: start: 20070112, end: 20070115
  2. CYMBALTA [Interacting]
     Dosage: 60 MG, DAILY (1/D)
     Route: 048
     Dates: start: 20070116, end: 20070118
  3. APONAL [Interacting]
     Dosage: 300 MG, DAILY (1/D)
     Route: 048
     Dates: end: 20070108
  4. APONAL [Interacting]
     Dosage: 250 MG, DAILY (1/D)
     Route: 048
     Dates: start: 20070109, end: 20070109
  5. APONAL [Interacting]
     Dosage: 200 MG, DAILY (1/D)
     Route: 048
     Dates: start: 20070110, end: 20070110
  6. APONAL [Interacting]
     Dosage: 150 MG, DAILY (1/D)
     Route: 048
     Dates: start: 20070111, end: 20070114
  7. APONAL [Interacting]
     Dosage: 100 MG, DAILY (1/D)
     Route: 048
     Dates: start: 20070115, end: 20070115
  8. APONAL [Interacting]
     Dosage: 50 MG, DAILY (1/D)
     Route: 048
     Dates: start: 20070116, end: 20070122
  9. LISINOPRIL [Concomitant]
     Dosage: 20 MG, DAILY (1/D)
     Route: 048
     Dates: start: 20070101
  10. ASPIRIN [Concomitant]
     Dosage: 100 MG, DAILY (1/D)
     Route: 048
     Dates: start: 20070101
  11. PRAVASTATIN [Concomitant]
     Dosage: 20 MG, DAILY (1/D)
     Route: 048
     Dates: start: 20070101
  12. ALNA [Concomitant]
     Dosage: 0.4 MG, DAILY (1/D)
     Route: 048
     Dates: start: 20070101
  13. METOPROLOL SUCCINATE [Concomitant]
     Dosage: 25 MG, DAILY (1/D)
     Route: 048
     Dates: start: 20070101
  14. ALLOPURINOL [Concomitant]
     Dosage: 300 MG, DAILY (1/D)
     Route: 048
     Dates: start: 20070101

REACTIONS (2)
  - DRUG INTERACTION [None]
  - URINARY RETENTION [None]
